FAERS Safety Report 13104535 (Version 1)
Quarter: 2017Q1

REPORT INFORMATION
  Report Type: Spontaneous
  Country: GB (occurrence: GB)
  Receive Date: 20170111
  Receipt Date: 20170111
  Transmission Date: 20170428
  Serious: Yes (Other)
  Sender: FDA-Public Use
  Company Number: GB-TEVA-727793ACC

PATIENT
  Age: 65 Year
  Sex: Female
  Weight: 62 kg

DRUGS (10)
  1. BETAHISTINE [Concomitant]
     Active Substance: BETAHISTINE
     Dosage: 3 DOSAGE FORMS DAILY;
     Dates: start: 20161206
  2. CANDESARTAN [Concomitant]
     Active Substance: CANDESARTAN
     Dosage: 1 DOSAGE FORMS DAILY;
     Dates: start: 20161012
  3. ZOLMITRIPTAN. [Concomitant]
     Active Substance: ZOLMITRIPTAN
     Dosage: AS DIRECTED.
     Dates: start: 20140602
  4. DOSULEPIN HYDROCHLORIDE [Concomitant]
     Active Substance: DOTHIEPIN HYDROCHLORIDE
     Dosage: 2 DOSAGE FORMS DAILY; AT NIGHT.
     Dates: start: 20140602
  5. TRAMADOL. [Concomitant]
     Active Substance: TRAMADOL
     Dosage: ONE OR TWO CAPSULES UP TO 4 TIMES A DAY.
     Route: 048
     Dates: start: 20161108, end: 20161206
  6. TRAMULIEF SR [Concomitant]
     Dosage: 2 DOSAGE FORMS DAILY;
     Dates: start: 20140905, end: 20161207
  7. BISOPROLOL [Concomitant]
     Active Substance: BISOPROLOL
     Dosage: 1 DOSAGE FORMS DAILY;
     Dates: start: 20161220
  8. PARACETAMOL [Concomitant]
     Active Substance: ACETAMINOPHEN
     Dosage: 8 DOSAGE FORMS DAILY;
     Dates: start: 20140905
  9. INDAPAMIDE. [Suspect]
     Active Substance: INDAPAMIDE
     Dates: start: 20161206
  10. DOXAZOSIN [Concomitant]
     Active Substance: DOXAZOSIN\DOXAZOSIN MESYLATE
     Dosage: 1 DOSAGE FORMS DAILY;
     Dates: start: 20161108, end: 20161206

REACTIONS (3)
  - Nausea [Recovered/Resolved]
  - Dysgeusia [Recovered/Resolved]
  - Dizziness [Recovered/Resolved]

NARRATIVE: CASE EVENT DATE: 20161222
